FAERS Safety Report 13800005 (Version 4)
Quarter: 2017Q4

REPORT INFORMATION
  Report Type: Report from Study
  Country: US (occurrence: US)
  Receive Date: 20170727
  Receipt Date: 20171024
  Transmission Date: 20180320
  Serious: Yes (Other)
  Sender: FDA-Public Use
  Company Number: US-SAOL THERAPEUTICS-2017SAO01228

PATIENT
  Age: 42 Year
  Sex: Female
  Weight: 81.18 kg

DRUGS (45)
  1. COMPOUNDED BACLOFEN [Suspect]
     Active Substance: BACLOFEN
     Dosage: 106.1 ?G, \DAY
     Route: 037
     Dates: start: 20161222
  2. CLONIDINE. [Suspect]
     Active Substance: CLONIDINE
     Dosage: 66.67 ?G, \DAY
     Route: 037
     Dates: start: 20161222
  3. COMPOUNDED BACLOFEN [Suspect]
     Active Substance: BACLOFEN
     Dosage: 151.67 ?G, \DAY
     Route: 037
     Dates: start: 20160907
  4. COMPOUNDED BACLOFEN [Suspect]
     Active Substance: BACLOFEN
     Dosage: 171.45 ?G, \DAY
     Route: 037
     Dates: start: 20160923
  5. DILAUDID [Suspect]
     Active Substance: HYDROMORPHONE HYDROCHLORIDE
     Dosage: 3.074 MG, \DAY
     Route: 037
     Dates: start: 20161003
  6. CLONIDINE. [Suspect]
     Active Substance: CLONIDINE
     Dosage: 254.82 ?G, \DAY
     Dates: start: 20160810
  7. COMPOUNDED BACLOFEN [Suspect]
     Active Substance: BACLOFEN
     Dosage: 200.1 ?G, \DAY
     Route: 037
     Dates: start: 20161222, end: 20161222
  8. DILAUDID [Suspect]
     Active Substance: HYDROMORPHONE HYDROCHLORIDE
     Dosage: 1.0 MG, \DAY
     Route: 037
     Dates: start: 20161222
  9. BUPIVACAINE. [Suspect]
     Active Substance: BUPIVACAINE
     Dosage: 22.750 ?G, \DAY
     Route: 037
     Dates: start: 20160907
  10. COMPOUNDED BACLOFEN [Suspect]
     Active Substance: BACLOFEN
     Dosage: 100.9 ?G, \DAY
     Route: 037
     Dates: start: 20160810
  11. COMPOUNDED BACLOFEN [Suspect]
     Active Substance: BACLOFEN
     Dosage: 153.73 ?G, \DAY
     Route: 037
     Dates: start: 20161003
  12. DILAUDID [Suspect]
     Active Substance: HYDROMORPHONE HYDROCHLORIDE
     Dosage: 2.001 MG, \DAY
     Route: 037
     Dates: start: 20160810
  13. DILAUDID [Suspect]
     Active Substance: HYDROMORPHONE HYDROCHLORIDE
     Dosage: 3.074 MG, \DAY
     Route: 037
     Dates: start: 20161003
  14. DILAUDID [Suspect]
     Active Substance: HYDROMORPHONE HYDROCHLORIDE
     Dosage: 3.033 MG, \DAY
     Route: 037
     Dates: start: 20160907
  15. CLONIDINE. [Suspect]
     Active Substance: CLONIDINE
     Dosage: 100.9 ?G, \DAY
     Route: 037
     Dates: start: 20160810, end: 20161222
  16. DILAUDID [Suspect]
     Active Substance: HYDROMORPHONE HYDROCHLORIDE
     Dosage: 1.501 MG, \DAY
     Route: 037
     Dates: start: 20160808
  17. COMPOUNDED BACLOFEN [Suspect]
     Active Substance: BACLOFEN
     Dosage: 231.8 ?G, \DAY
     Route: 037
     Dates: start: 20161222, end: 20161222
  18. BUPIVACAINE. [Suspect]
     Active Substance: BUPIVACAINE
     Dosage: 23.060 ?G, \DAY
     Route: 037
     Dates: start: 20161003
  19. BUPIVACAINE. [Suspect]
     Active Substance: BUPIVACAINE
     Dosage: 17.710 MG, \DAY
     Route: 037
     Dates: start: 20160923
  20. BUPIVACAINE. [Suspect]
     Active Substance: BUPIVACAINE
     Dosage: 15.014 MG, \DAY
     Route: 037
     Dates: start: 20160810, end: 20161222
  21. BUPIVACAINE. [Suspect]
     Active Substance: BUPIVACAINE
     Dosage: 22.521 MG, \DAY
     Route: 037
     Dates: start: 20160808, end: 20160810
  22. CLONIDINE. [Suspect]
     Active Substance: CLONIDINE
     Dosage: 151.67 ?G, \DAY
     Route: 037
     Dates: start: 20160907
  23. DILAUDID [Suspect]
     Active Substance: HYDROMORPHONE HYDROCHLORIDE
     Dosage: 3.089 MG, \DAY
     Route: 037
  24. BUPIVACAINE. [Suspect]
     Active Substance: BUPIVACAINE
     Dosage: 38.223 MG, \DAY
     Dates: start: 20160810, end: 20161222
  25. BUPIVACAINE. [Suspect]
     Active Substance: BUPIVACAINE
     Dosage: 15.014 MG, \DAY
     Route: 037
     Dates: start: 20161222, end: 20161222
  26. BUPIVACAINE. [Suspect]
     Active Substance: BUPIVACAINE
     Dosage: 5.0 MG, \DAY
     Route: 037
     Dates: start: 20161222
  27. CLONIDINE. [Suspect]
     Active Substance: CLONIDINE
     Dosage: 200.18 ?G, \DAY
     Route: 037
     Dates: start: 20161222, end: 20161222
  28. CLONIDINE. [Suspect]
     Active Substance: CLONIDINE
     Dosage: 153.73 ?G, \DAY
     Route: 037
     Dates: start: 20161003
  29. BUPIVACAINE. [Suspect]
     Active Substance: BUPIVACAINE
     Dosage: 17.386 MG, \DAY
     Route: 037
     Dates: start: 20161222, end: 20161222
  30. BUPIVACAINE. [Suspect]
     Active Substance: BUPIVACAINE
     Dosage: 7.961 MG, \DAY
     Route: 037
     Dates: start: 20161222
  31. BUPIVACAINE. [Suspect]
     Active Substance: BUPIVACAINE
     Dosage: 25.718 ?G, \DAY
     Route: 037
     Dates: start: 20160923
  32. DILAUDID [Suspect]
     Active Substance: HYDROMORPHONE HYDROCHLORIDE
     Dosage: 5.096 MG, \DAY
     Route: 037
     Dates: start: 20160810, end: 20161003
  33. DILAUDID [Suspect]
     Active Substance: HYDROMORPHONE HYDROCHLORIDE
     Dosage: 2.361 MG, \DAY
     Route: 037
     Dates: start: 20160923
  34. COMPOUNDED BACLOFEN [Suspect]
     Active Substance: BACLOFEN
     Dosage: 66.6 ?G, \DAY
     Route: 037
     Dates: start: 20161222
  35. DILAUDID [Suspect]
     Active Substance: HYDROMORPHONE HYDROCHLORIDE
     Dosage: 1.592 MG, \DAY
     Route: 037
     Dates: start: 20161222
  36. CLONIDINE. [Suspect]
     Active Substance: CLONIDINE
     Dosage: 231.82 ?G, \DAY
     Route: 037
     Dates: start: 20161222, end: 20161222
  37. COMPOUNDED BACLOFEN [Suspect]
     Active Substance: BACLOFEN
     Dosage: 118.07 ?G, \DAY
     Route: 037
     Dates: start: 20160923
  38. DILAUDID [Suspect]
     Active Substance: HYDROMORPHONE HYDROCHLORIDE
     Dosage: 3.429 MG, \DAY
     Route: 037
     Dates: start: 20160923
  39. CLONIDINE. [Suspect]
     Active Substance: CLONIDINE
     Dosage: 171.45 ?G, UNK
     Route: 037
     Dates: start: 20160923
  40. DILAUDID [Suspect]
     Active Substance: HYDROMORPHONE HYDROCHLORIDE
     Dosage: 3.002 MG, \DAY
     Route: 037
     Dates: start: 20161222, end: 20161222
  41. DILAUDID [Suspect]
     Active Substance: HYDROMORPHONE HYDROCHLORIDE
     Dosage: 3.477 MG, \DAY
     Route: 037
     Dates: start: 20161222, end: 20161222
  42. BUPIVACAINE. [Suspect]
     Active Substance: BUPIVACAINE
     Dosage: 46.346 MG, \DAY
     Route: 037
     Dates: start: 20160808, end: 20160810
  43. CLONIDINE. [Suspect]
     Active Substance: CLONIDINE
     Dosage: 106.15 ?G, \DAY
     Route: 037
     Dates: start: 20161222
  44. COMPOUNDED BACLOFEN [Suspect]
     Active Substance: BACLOFEN
     Dosage: 254.82 ?G, \DAY
     Route: 037
     Dates: start: 20160810
  45. CLONIDINE. [Suspect]
     Active Substance: CLONIDINE
     Dosage: 118.07 ?G, \DAY
     Route: 037
     Dates: start: 20160923

REACTIONS (8)
  - Respiratory depression [Unknown]
  - Implant site pain [Recovered/Resolved]
  - Device leakage [Unknown]
  - Neoplasm malignant [Unknown]
  - Device kink [Unknown]
  - Pain [Recovered/Resolved]
  - Device dislocation [Recovered/Resolved]
  - Device infusion issue [Unknown]

NARRATIVE: CASE EVENT DATE: 20160902
